FAERS Safety Report 5990003-8 (Version None)
Quarter: 2008Q4

REPORT INFORMATION
  Report Type: 
  Country: None (occurrence: None)
  Receive Date: 20081209
  Receipt Date: 20081209
  Transmission Date: 20090506
  Serious: Yes (Life-Threatening, Hospitalization)
  Sender: FDA-Public Use
  Company Number: None

PATIENT
  Age: 58 Year
  Sex: Male
  Weight: 140.1615 kg

DRUGS (1)
  1. TERAZOSIN HCL [Suspect]
     Indication: BENIGN PROSTATIC HYPERPLASIA
     Dosage: ONE TAB PO
     Route: 048
     Dates: start: 20081208, end: 20081208

REACTIONS (3)
  - ANAPHYLACTIC REACTION [None]
  - BLINDNESS [None]
  - HYPOTENSION [None]
